FAERS Safety Report 14031445 (Version 2)
Quarter: 2017Q4

REPORT INFORMATION
  Report Type: Spontaneous
  Country: FR (occurrence: FR)
  Receive Date: 20171003
  Receipt Date: 20171010
  Transmission Date: 20180321
  Serious: Yes (Other)
  Sender: FDA-Public Use
  Company Number: FR-MERCK KGAA-2028438

PATIENT
  Age: 45 Year
  Sex: Female

DRUGS (1)
  1. NOVOTHYROX [Suspect]
     Active Substance: LEVOTHYROXINE SODIUM
     Indication: THYROIDECTOMY
     Route: 048
     Dates: start: 20170808, end: 20170909

REACTIONS (9)
  - Vertigo [Unknown]
  - Abdominal pain [Unknown]
  - Hypotonia [Unknown]
  - Flatulence [Unknown]
  - Blood thyroid stimulating hormone increased [Not Recovered/Not Resolved]
  - Disturbance in attention [Unknown]
  - Head discomfort [Unknown]
  - Dyspnoea [Unknown]
  - Fatigue [Unknown]

NARRATIVE: CASE EVENT DATE: 2017
